FAERS Safety Report 5059608-5 (Version None)
Quarter: 2006Q3

REPORT INFORMATION
  Report Type: 
  Country: None (occurrence: None)
  Receive Date: 20060720
  Receipt Date: 20060510
  Transmission Date: 20061208
  Serious: No
  Sender: FDA-Public Use
  Company Number: DL2006253

PATIENT
  Age: 34 Year
  Sex: Female

DRUGS (2)
  1. MIFEPRISTONE TABLETS, 200 MG (DANCO LABS) [Suspect]
     Indication: ABORTION INDUCED
     Dosage: 200 MG, ORAL
     Route: 048
     Dates: start: 20060218
  2. MISOPROSTOL [Suspect]
     Dosage: 800 MCG, VAGINAL
     Route: 067
     Dates: start: 20060218

REACTIONS (6)
  - MUSCLE SPASMS [None]
  - PELVIC INFLAMMATORY DISEASE [None]
  - PREGNANCY [None]
  - PYREXIA [None]
  - VAGINAL INFECTION [None]
  - VOMITING [None]
